FAERS Safety Report 24044940 (Version 1)
Quarter: 2024Q3

REPORT INFORMATION
  Report Type: Report from Study
  Country: IL (occurrence: IL)
  Receive Date: 20240703
  Receipt Date: 20240703
  Transmission Date: 20241016
  Serious: Yes (Other)
  Sender: MYLAN
  Company Number: IL-MYLANLABS-2024M1061594

PATIENT

DRUGS (1)
  1. SERTRALINE [Suspect]
     Active Substance: SERTRALINE HYDROCHLORIDE
     Indication: Obsessive-compulsive disorder
     Dosage: 300 MILLIGRAM (FOR 6?MONTHS)
     Route: 065

REACTIONS (2)
  - Generalised tonic-clonic seizure [Recovered/Resolved]
  - Off label use [Recovered/Resolved]
